FAERS Safety Report 4811427-8 (Version None)
Quarter: 2005Q4

REPORT INFORMATION
  Report Type: 
  Country: None (occurrence: None)
  Receive Date: 20051026
  Receipt Date: 20051026
  Transmission Date: 20060501
  Serious: Yes (Hospitalization, Other)
  Sender: FDA-Public Use
  Company Number: None

PATIENT
  Sex: Female
  Weight: 139.4 kg

DRUGS (3)
  1. VP-16 [Suspect]
     Indication: ACUTE MYELOID LEUKAEMIA
     Dosage: SEE IMAGE
     Route: 042
     Dates: start: 20051011
  2. CYTARABINE [Suspect]
     Dosage: SEE IMAGE
     Route: 042
  3. NEUPOGEN [Suspect]
     Dosage: SEE IMAGE

REACTIONS (3)
  - FEBRILE NEUTROPENIA [None]
  - STAPHYLOCOCCAL INFECTION [None]
  - URINARY TRACT INFECTION ENTEROCOCCAL [None]
